FAERS Safety Report 6288639-2 (Version None)
Quarter: 2009Q3

REPORT INFORMATION
  Report Type: 
  Country: None (occurrence: None)
  Receive Date: 20090729
  Receipt Date: 20090720
  Transmission Date: 20100115
  Serious: Yes (Hospitalization)
  Sender: FDA-Public Use
  Company Number: DE-ASTRAZENECA-2009SE05345

PATIENT
  Age: 84 Year
  Sex: Female
  Weight: 63 kg

DRUGS (23)
  1. SYMBICORT [Interacting]
     Indication: CHRONIC OBSTRUCTIVE PULMONARY DISEASE
     Dosage: 1 DF= 160MG BUDESONIDE + 4.5MG FORMOTEROL
     Route: 055
     Dates: start: 20080701
  2. PANTOZOL [Interacting]
     Indication: PROPHYLAXIS AGAINST GASTROINTESTINAL ULCER
     Route: 048
     Dates: start: 20041001
  3. PREDNISOLONE [Interacting]
     Indication: CHRONIC OBSTRUCTIVE PULMONARY DISEASE
     Route: 048
     Dates: start: 20090326, end: 20090406
  4. PRIMAXIN [Suspect]
     Indication: URINARY TRACT INFECTION
     Route: 042
     Dates: start: 20090414, end: 20090416
  5. RULID [Suspect]
     Indication: PNEUMONIA
     Route: 048
     Dates: start: 20090326, end: 20090406
  6. ROCEPHIN [Suspect]
     Indication: PNEUMONIA
     Route: 042
     Dates: start: 20090326, end: 20090406
  7. METRONIDAZOLE [Concomitant]
     Indication: CLOSTRIDIUM DIFFICILE COLITIS
     Route: 048
     Dates: start: 20090425, end: 20090502
  8. SIMETHICONE [Concomitant]
     Indication: FLATULENCE
     Dosage: FREQUENCY OF APPLICATION AND DOSAGE ARE UNKNOWN
     Route: 048
     Dates: start: 20090406, end: 20090414
  9. SIMVASTATIN [Concomitant]
     Indication: HYPERLIPIDAEMIA
     Route: 048
     Dates: start: 20070701
  10. RAMIPRIL [Concomitant]
     Indication: HYPERTENSION
     Route: 048
     Dates: start: 20070701, end: 20090501
  11. SPIRONOLACTONE [Concomitant]
     Indication: HYPERTENSION
     Route: 048
     Dates: start: 20041001, end: 20090507
  12. CARMEN [Concomitant]
     Indication: HYPERTENSION
     Route: 048
     Dates: start: 20041001
  13. TOREM [Concomitant]
     Indication: HYPERTENSION
     Route: 048
     Dates: start: 20080701, end: 20090407
  14. XIPAMIDE [Concomitant]
     Indication: HYPERTENSION
     Route: 048
     Dates: start: 20090326, end: 20090414
  15. ACTRAPID HUMAN [Concomitant]
     Indication: DIABETES MELLITUS
     Dosage: 12/4/8 IU
     Route: 058
     Dates: start: 20080301
  16. ASPIRIN [Concomitant]
     Indication: CORONARY ARTERY DISEASE
     Route: 048
     Dates: start: 19930101
  17. CARVEDILOL [Concomitant]
     Indication: HYPERTENSION
     Route: 048
     Dates: start: 19950101
  18. LANTUS [Concomitant]
     Indication: DIABETES MELLITUS
     Route: 058
     Dates: start: 20090501
  19. SPIRIVA [Concomitant]
     Indication: CHRONIC OBSTRUCTIVE PULMONARY DISEASE
     Route: 055
     Dates: start: 20090101
  20. MOXONIDINE [Concomitant]
     Indication: HYPERTENSION
     Route: 048
     Dates: start: 20070720
  21. CALCIUM [Concomitant]
     Route: 048
  22. AVELOX [Concomitant]
     Indication: PNEUMONIA
     Dates: start: 20090131, end: 20090203
  23. AMPICILLIN [Concomitant]
     Indication: URINARY TRACT INFECTION
     Dates: start: 20090127, end: 20090130

REACTIONS (2)
  - CLOSTRIDIUM DIFFICILE COLITIS [None]
  - DRUG INTERACTION [None]
